FAERS Safety Report 9834583 (Version 8)
Quarter: 2015Q2

REPORT INFORMATION
  Report Type: Report from Study
  Country: US (occurrence: US)
  Receive Date: 20140122
  Receipt Date: 20150403
  Transmission Date: 20150821
  Serious: Yes (Hospitalization, Other)
  Sender: FDA-Public Use
  Company Number: US-SA-2013SA122533

PATIENT
  Age: 50 Year
  Sex: Female

DRUGS (5)
  1. AUBAGIO [Suspect]
     Active Substance: TERIFLUNOMIDE
     Indication: MULTIPLE SCLEROSIS
     Route: 048
     Dates: start: 20140313, end: 20150320
  2. AUBAGIO [Suspect]
     Active Substance: TERIFLUNOMIDE
     Indication: MULTIPLE SCLEROSIS
     Route: 048
     Dates: end: 20131108
  3. AUBAGIO [Suspect]
     Active Substance: TERIFLUNOMIDE
     Indication: MULTIPLE SCLEROSIS
     Route: 048
     Dates: start: 20140103, end: 20140214
  4. TECFIDERA [Concomitant]
     Active Substance: DIMETHYL FUMARATE
  5. AUBAGIO [Suspect]
     Active Substance: TERIFLUNOMIDE
     Indication: MULTIPLE SCLEROSIS
     Route: 048
     Dates: start: 20130314, end: 201309

REACTIONS (15)
  - Immunodeficiency [Unknown]
  - Wound infection [Unknown]
  - Muscular weakness [Recovering/Resolving]
  - Fall [Recovering/Resolving]
  - Drug dose omission [Unknown]
  - Furuncle [Unknown]
  - Tooth infection [Unknown]
  - Head injury [Recovering/Resolving]
  - Laceration [Unknown]
  - Diarrhoea [Unknown]
  - Balance disorder [Unknown]
  - Blood pressure increased [Unknown]
  - Sinusitis [Unknown]
  - Infection [Unknown]
  - Eye infection [Unknown]

NARRATIVE: CASE EVENT DATE: 201312
